FAERS Safety Report 17419695 (Version 1)
Quarter: 2020Q1

REPORT INFORMATION
  Report Type: Spontaneous
  Country: CA (occurrence: CA)
  Receive Date: 20200214
  Receipt Date: 20200214
  Transmission Date: 20200409
  Serious: Yes (Death, Hospitalization, Other)
  Sender: FDA-Public Use
  Company Number: CA-TEVA-2020-CA-1183502

PATIENT
  Age: 76 Year
  Sex: Male
  Weight: 59 kg

DRUGS (11)
  1. SALBUTAMOL [Suspect]
     Active Substance: ALBUTEROL
     Indication: WHEEZING
     Dosage: 2 DOSAGE FORMS DAILY;
     Route: 065
  2. SALBUTAMOL [Suspect]
     Active Substance: ALBUTEROL
     Indication: ASTHMA
  3. ADVAIR HFA [Concomitant]
     Active Substance: FLUTICASONE PROPIONATE\SALMETEROL XINAFOATE
     Indication: PRODUCT USED FOR UNKNOWN INDICATION
     Route: 065
  4. MORPHINE [Suspect]
     Active Substance: MORPHINE
     Indication: PAIN
     Route: 065
  5. OMALIZUMAB. [Suspect]
     Active Substance: OMALIZUMAB
     Route: 058
  6. DILAUDID [Concomitant]
     Active Substance: HYDROMORPHONE HYDROCHLORIDE
     Indication: PRODUCT USED FOR UNKNOWN INDICATION
     Route: 065
  7. OMALIZUMAB. [Suspect]
     Active Substance: OMALIZUMAB
     Indication: ASTHMA
     Route: 065
  8. VALPROATE SODIUM. [Concomitant]
     Active Substance: VALPROATE SODIUM
     Indication: PRODUCT USED FOR UNKNOWN INDICATION
     Route: 065
  9. OMALIZUMAB. [Suspect]
     Active Substance: OMALIZUMAB
     Route: 065
  10. OMALIZUMAB. [Suspect]
     Active Substance: OMALIZUMAB
     Route: 058
  11. AMMONIUM CHLORIDE/CAFFEINE [Concomitant]
     Indication: PRODUCT USED FOR UNKNOWN INDICATION
     Route: 065

REACTIONS (48)
  - Body temperature increased [Fatal]
  - Fatigue [Fatal]
  - Sinusitis [Fatal]
  - Abdominal discomfort [Fatal]
  - Asthma [Fatal]
  - Back pain [Fatal]
  - Cough [Fatal]
  - Heart rate irregular [Fatal]
  - Hypopnoea [Fatal]
  - Nasal congestion [Fatal]
  - Blood pressure increased [Fatal]
  - Breath sounds abnormal [Fatal]
  - Diarrhoea [Fatal]
  - Disturbance in attention [Fatal]
  - Hypertension [Fatal]
  - Hypoventilation [Fatal]
  - Insomnia [Fatal]
  - Polyp [Fatal]
  - Productive cough [Fatal]
  - Sepsis [Fatal]
  - Urinary tract infection [Fatal]
  - Anxiety [Fatal]
  - Blood pressure diastolic decreased [Fatal]
  - Feeling abnormal [Fatal]
  - Rhonchi [Fatal]
  - Dyspnoea [Fatal]
  - Heart rate increased [Fatal]
  - Memory impairment [Fatal]
  - Respiratory rate increased [Fatal]
  - Sputum discoloured [Fatal]
  - Stress [Fatal]
  - Abdominal pain upper [Fatal]
  - Malaise [Fatal]
  - Muscle spasms [Fatal]
  - Nasopharyngitis [Fatal]
  - Respiratory disorder [Fatal]
  - Respiratory tract congestion [Fatal]
  - Respiratory tract infection [Fatal]
  - Wheezing [Fatal]
  - Chest discomfort [Fatal]
  - Haematoma [Fatal]
  - Pain [Fatal]
  - Prostate cancer metastatic [Fatal]
  - Umbilical hernia [Fatal]
  - Urinary tract disorder [Fatal]
  - Asthenia [Fatal]
  - Dizziness [Fatal]
  - Metastases to bone [Fatal]
